FAERS Safety Report 10662469 (Version 2)
Quarter: 2014Q4

REPORT INFORMATION
  Report Type: Spontaneous
  Country: AT (occurrence: AT)
  Receive Date: 20141218
  Receipt Date: 20141218
  Transmission Date: 20150529
  Serious: Yes (Other)
  Sender: FDA-Public Use
  Company Number: AT-CELGENE-009-20785-13101301

PATIENT

DRUGS (2)
  1. HEPARIN [Concomitant]
     Active Substance: HEPARIN SODIUM
     Indication: PRODUCT USED FOR UNKNOWN INDICATION
     Route: 065
  2. THALIDOMIDE [Suspect]
     Active Substance: THALIDOMIDE
     Indication: GLIOBLASTOMA MULTIFORME
     Route: 048

REACTIONS (3)
  - Deep vein thrombosis [Unknown]
  - Skin reaction [Unknown]
  - Therapeutic response unexpected [Unknown]
